FAERS Safety Report 10286897 (Version 3)
Quarter: 2014Q3

REPORT INFORMATION
  Report Type: Report from Study
  Country: US (occurrence: US)
  Receive Date: 20140709
  Receipt Date: 20140807
  Transmission Date: 20150326
  Serious: Yes (Death, Hospitalization)
  Sender: FDA-Public Use
  Company Number: US-PFIZER INC-2014189488

PATIENT
  Age: 14 Year
  Sex: Male

DRUGS (3)
  1. METHYLPHENIDATE HYDROCHLORIDE. [Suspect]
     Active Substance: METHYLPHENIDATE HYDROCHLORIDE
     Dosage: UNK
  2. BUPROPION [Suspect]
     Active Substance: BUPROPION
     Dosage: UNK
  3. CLONIDINE. [Suspect]
     Active Substance: CLONIDINE
     Dosage: UNK

REACTIONS (4)
  - Completed suicide [Fatal]
  - Convulsion [Fatal]
  - Poisoning deliberate [Fatal]
  - Cardiac arrest [Fatal]
